FAERS Safety Report 5730469-1 (Version None)
Quarter: 2008Q2

REPORT INFORMATION
  Report Type: 
  Country: None (occurrence: None)
  Receive Date: 20080507
  Receipt Date: 20080430
  Transmission Date: 20081010
  Serious: Yes (Hospitalization)
  Sender: FDA-Public Use
  Company Number: AT-AVENTIS-200811992EU

PATIENT
  Age: 42 Year
  Sex: Male
  Weight: 84 kg

DRUGS (8)
  1. LOVENOX [Suspect]
     Indication: DIALYSIS
     Route: 058
     Dates: start: 20080310, end: 20080310
  2. LOVENOX [Suspect]
     Route: 058
     Dates: start: 20080326, end: 20080326
  3. LOVENOX [Suspect]
     Route: 058
     Dates: start: 20080407, end: 20080407
  4. LOVENOX [Suspect]
     Route: 058
     Dates: start: 20080416, end: 20080416
  5. RENITEC                            /00574901/ [Concomitant]
     Route: 048
  6. PANTOLOC                           /01263201/ [Concomitant]
     Route: 048
  7. CARVEDILOL [Concomitant]
     Route: 048
  8. NORMOXIN [Concomitant]
     Route: 048

REACTIONS (2)
  - HAEMOLYSIS [None]
  - THROMBOCYTOPENIA [None]
